FAERS Safety Report 8391987-3 (Version None)
Quarter: 2012Q2

REPORT INFORMATION
  Report Type: 
  Country: None (occurrence: None)
  Receive Date: 20120529
  Receipt Date: 20120524
  Transmission Date: 20120825
  Serious: Yes (Hospitalization, Other)
  Sender: FDA-Public Use
  Company Number: US-ROCHE-787494

PATIENT
  Sex: Female

DRUGS (3)
  1. ACCUTANE [Suspect]
     Indication: ACNE
     Route: 048
     Dates: start: 20000614, end: 20000714
  2. ACCUTANE [Suspect]
     Route: 048
     Dates: start: 20000822, end: 20010823
  3. NORGESTIMATE AND ETHINYL ESTRADIOL [Concomitant]
     Indication: PRODUCT USED FOR UNKNOWN INDICATION

REACTIONS (7)
  - INJURY [None]
  - COLITIS ULCERATIVE [None]
  - LIP DRY [None]
  - DEPRESSION [None]
  - INFLAMMATORY BOWEL DISEASE [None]
  - HAEMORRHOIDS [None]
  - CROHN'S DISEASE [None]
